FAERS Safety Report 17363223 (Version 1)
Quarter: 2020Q1

REPORT INFORMATION
  Report Type: Spontaneous
  Country: CA (occurrence: CA)
  Receive Date: 20200203
  Receipt Date: 20200203
  Transmission Date: 20200409
  Serious: Yes (Other)
  Sender: FDA-Public Use
  Company Number: CA-EXELIXIS-CABO-20027130

PATIENT
  Age: 83 Year
  Sex: Female

DRUGS (10)
  1. CABOMETYX [Suspect]
     Active Substance: CABOZANTINIB S-MALATE
     Indication: NEOPLASM MALIGNANT
     Dosage: 40 MG, QD
     Route: 048
  2. CITALOPRAM [Concomitant]
     Active Substance: CITALOPRAM HYDROBROMIDE
  3. GABAPENTIN. [Concomitant]
     Active Substance: GABAPENTIN
  4. METADOL [Concomitant]
  5. PERINDOPRIL [Concomitant]
     Active Substance: PERINDOPRIL
  6. PREDNISONE. [Concomitant]
     Active Substance: PREDNISONE
  7. DENOSUMAB [Concomitant]
     Active Substance: DENOSUMAB
  8. METHYLPHENIDATE. [Concomitant]
     Active Substance: METHYLPHENIDATE
  9. PANTOPRAZOLE [Concomitant]
     Active Substance: PANTOPRAZOLE
  10. VALACYCLOVIR [Concomitant]
     Active Substance: VALACYCLOVIR HYDROCHLORIDE

REACTIONS (10)
  - Haemoptysis [Recovering/Resolving]
  - Lung opacity [Recovering/Resolving]
  - Pulmonary vasculitis [Recovering/Resolving]
  - Petechiae [Recovering/Resolving]
  - Vasculitis [Recovering/Resolving]
  - Pyrexia [Recovering/Resolving]
  - Pneumonia [Recovering/Resolving]
  - Purpura [Recovering/Resolving]
  - Dyspnoea [Recovering/Resolving]
  - Pulmonary haemorrhage [Recovering/Resolving]
